FAERS Safety Report 11048490 (Version 1)
Quarter: 2015Q2

REPORT INFORMATION
  Report Type: Spontaneous
  Country: US (occurrence: US)
  Receive Date: 20150420
  Receipt Date: 20150420
  Transmission Date: 20150821
  Serious: No
  Sender: FDA-Public Use
  Company Number: US-BIOGENIDEC-2015BI050812

PATIENT
  Sex: Male

DRUGS (1)
  1. TECFIDERA [Suspect]
     Active Substance: DIMETHYL FUMARATE
     Indication: MULTIPLE SCLEROSIS

REACTIONS (7)
  - Hypoaesthesia [Unknown]
  - Visual impairment [Unknown]
  - Headache [Unknown]
  - Optic neuritis [Unknown]
  - General symptom [Unknown]
  - Eye disorder [Unknown]
  - Tinnitus [Unknown]
